FAERS Safety Report 5152507-X (Version None)
Quarter: 2006Q4

REPORT INFORMATION
  Report Type: 
  Country: None (occurrence: None)
  Receive Date: 20061109
  Receipt Date: 20061024
  Transmission Date: 20070319
  Serious: Yes (Other)
  Sender: FDA-Public Use
  Company Number: S06-FRA-04599-01

PATIENT
  Age: 20 Year
  Sex: Female

DRUGS (4)
  1. SEROPLEX                   (ESCITALOPRAM) [Suspect]
     Indication: DEPRESSION
     Dosage: 10 MG QD PO
     Route: 048
     Dates: start: 20060101, end: 20060101
  2. SEROPLEX               (ESCITALOPRAM) [Suspect]
     Indication: DEPRESSION
     Dosage: 20 MG QD PO
     Route: 048
     Dates: start: 20050101, end: 20060101
  3. SEROPLEX                      (ESCITALOPRAM) [Suspect]
     Indication: DEPRESSION
     Dosage: 15 MG QD PO
     Route: 048
     Dates: start: 20060101
  4. TRILEPTAL [Concomitant]

REACTIONS (4)
  - AGITATION [None]
  - DRUG WITHDRAWAL SYNDROME [None]
  - PARASOMNIA [None]
  - SLEEP WALKING [None]
